FAERS Safety Report 5430552-4 (Version None)
Quarter: 2007Q3

REPORT INFORMATION
  Report Type: 
  Country: None (occurrence: None)
  Receive Date: 20070830
  Receipt Date: 20070824
  Transmission Date: 20080115
  Serious: Yes (Other)
  Sender: FDA-Public Use
  Company Number: US-ELI_LILLY_AND_COMPANY-US200708002618

PATIENT
  Sex: Female

DRUGS (9)
  1. GEMZAR [Suspect]
     Indication: BREAST CANCER STAGE IV
     Dosage: 1000 MG/M2, OTHER
     Route: 042
  2. LASIX [Concomitant]
     Dosage: 40 MG, DAILY (1/D)
  3. LISINOPRIL [Concomitant]
     Dosage: 10 MG, DAILY (1/D)
  4. METFORMIN [Concomitant]
  5. OXYCODONE HCL [Concomitant]
  6. PROCRIT [Concomitant]
  7. ZANTAC 150 [Concomitant]
  8. ADVAIR DISKUS 100/50 [Concomitant]
  9. ALBUTEROL [Concomitant]
     Dosage: UNK, AS NEEDED

REACTIONS (6)
  - DYSPNOEA [None]
  - DYSPNOEA EXERTIONAL [None]
  - HYPOXIA [None]
  - OEDEMA [None]
  - PLEURAL EFFUSION [None]
  - PULMONARY FIBROSIS [None]
